FAERS Safety Report 9159617 (Version 1)
Quarter: 2013Q1

REPORT INFORMATION
  Report Type: Spontaneous
  Country: None (occurrence: None)
  Receive Date: 20130219
  Receipt Date: 20130219
  Transmission Date: 20140127
  Serious: No
  Sender: FDA-Public Use
  Company Number: 2013P1002258

PATIENT
  Sex: 0

DRUGS (1)
  1. NICARDIPINE [Suspect]
     Indication: HYPERTENSION

REACTIONS (1)
  - Staphylococcal scalded skin syndrome [None]
